FAERS Safety Report 7551972-8 (Version None)
Quarter: 2011Q2

REPORT INFORMATION
  Report Type: 
  Country: None (occurrence: None)
  Receive Date: 20110616
  Receipt Date: 20110608
  Transmission Date: 20111010
  Serious: Yes (Other)
  Sender: FDA-Public Use
  Company Number: US-NOVOPROD-329571

PATIENT
  Sex: Male
  Weight: 113.38 kg

DRUGS (4)
  1. OPRAZOLE                           /00661201/ [Concomitant]
     Indication: GALLBLADDER DISORDER
  2. GLYBURIDE [Concomitant]
     Indication: DIABETES MELLITUS
  3. LEVEMIR [Suspect]
     Indication: DIABETES MELLITUS
     Dosage: 60 IU, QD
     Route: 058
     Dates: start: 20100501
  4. LEVEMIR [Suspect]
     Dosage: 35 IU, BID

REACTIONS (3)
  - CRANIAL NERVE INJURY [None]
  - DIPLOPIA [None]
  - HEADACHE [None]
